FAERS Safety Report 16645479 (Version 1)
Quarter: 2019Q3

REPORT INFORMATION
  Report Type: Other
  Country: FR (occurrence: FR)
  Receive Date: 20190730
  Receipt Date: 20190730
  Transmission Date: 20191004
  Serious: Yes (Other)
  Sender: FDA-Public Use
  Company Number: FR-CELLTRION INC.-2019FR023163

PATIENT

DRUGS (3)
  1. TRUXIMA [Suspect]
     Active Substance: RITUXIMAB-ABBS
     Indication: THROMBOCYTOSIS
     Dosage: 1 G
     Route: 042
     Dates: start: 20190614, end: 20190614
  2. TOCILIZUMAB. [Suspect]
     Active Substance: TOCILIZUMAB
     Indication: THROMBOCYTOSIS
     Dosage: UNK
     Route: 042
     Dates: start: 20190603, end: 20190603
  3. RAPAMUNE [Suspect]
     Active Substance: SIROLIMUS
     Indication: THROMBOCYTOSIS
     Dosage: 4 MG, QD
     Route: 048
     Dates: start: 20190604, end: 20190627

REACTIONS (2)
  - Proteinuria [Recovering/Resolving]
  - Product use in unapproved indication [Unknown]

NARRATIVE: CASE EVENT DATE: 20190621
